FAERS Safety Report 8529020-2 (Version None)
Quarter: 2012Q3

REPORT INFORMATION
  Report Type: 
  Country: None (occurrence: None)
  Receive Date: 20120723
  Receipt Date: 20120717
  Transmission Date: 20120928
  Serious: Yes (Other)
  Sender: FDA-Public Use
  Company Number: US-PFIZER INC-2012159742

PATIENT
  Sex: Female
  Weight: 83.9 kg

DRUGS (7)
  1. LYRICA [Suspect]
     Indication: FIBROMYALGIA
     Dosage: 50 MG, DAILY (TO TAKE AT NIGHT)
     Route: 048
     Dates: start: 20120702
  2. LISINOPRIL [Concomitant]
     Indication: HYPERTENSION
     Dosage: 20 MG, DAILY
  3. FUROSEMIDE [Concomitant]
     Dosage: 10 MG, AS NEEDED
  4. ASPIRIN [Concomitant]
     Indication: PROPHYLAXIS
     Dosage: 81 MG, DAILY
  5. LEVOTHYROXINE [Concomitant]
     Indication: HYPOTHYROIDISM
     Dosage: 50 UG, UNK
  6. OMEPRAZOLE [Concomitant]
     Indication: GASTROOESOPHAGEAL REFLUX DISEASE
     Dosage: 20 MG, UNK
  7. LYRICA [Suspect]
     Dosage: 100 MG ONCE A DAY

REACTIONS (4)
  - FEELING ABNORMAL [None]
  - MENTAL IMPAIRMENT [None]
  - BALANCE DISORDER [None]
  - LETHARGY [None]
